FAERS Safety Report 24003425 (Version 6)
Quarter: 2024Q3

REPORT INFORMATION
  Report Type: Spontaneous
  Country: US (occurrence: US)
  Receive Date: 20240624
  Receipt Date: 20240927
  Transmission Date: 20241017
  Serious: Yes (Hospitalization)
  Sender: ROCHE
  Company Number: US-ROCHE-10000000111

PATIENT
  Age: 53 Year
  Sex: Male
  Weight: 101.38 kg

DRUGS (18)
  1. XOLAIR [Suspect]
     Active Substance: OMALIZUMAB
     Indication: Asthma
     Route: 058
     Dates: start: 20240320
  2. XOLAIR [Suspect]
     Active Substance: OMALIZUMAB
     Dosage: DOSE-75 MG PER .5 ML
     Route: 058
     Dates: start: 20231117
  3. XOLAIR [Suspect]
     Active Substance: OMALIZUMAB
     Route: 058
     Dates: start: 20230227
  4. OMALIZUMAB [Suspect]
     Active Substance: OMALIZUMAB
     Indication: Asthma
     Route: 058
     Dates: start: 20240320
  5. OMALIZUMAB [Suspect]
     Active Substance: OMALIZUMAB
     Dosage: 300 MG/2 ML
     Route: 058
     Dates: start: 20240227
  6. HYDROCODONE BITARTRATE AND ACETAMINOPHEN [Concomitant]
     Active Substance: ACETAMINOPHEN\HYDROCODONE BITARTRATE
     Dosage: ACETAMINOPHEN 5-325 MG TABLET 1 BY MOUTH 3 TIMES/ DAY
     Route: 048
     Dates: start: 20240809
  7. IBUPROFEN [Concomitant]
     Active Substance: IBUPROFEN
     Route: 048
  8. TIZANIDINE [Concomitant]
     Active Substance: TIZANIDINE
     Route: 048
  9. ALBUTEROL [Concomitant]
     Active Substance: ALBUTEROL
     Dosage: FREQUENCY-EVERY 4-6 HOURS ?INDICATION-FOR WHEEZING SHORTNESS OF BREATH
     Route: 048
     Dates: start: 20240814
  10. ALBUTEROL [Concomitant]
     Active Substance: ALBUTEROL
     Dates: start: 20240726
  11. ATORVASTATIN [Concomitant]
     Active Substance: ATORVASTATIN
  12. ALBUTEROL SULFATE [Concomitant]
     Active Substance: ALBUTEROL SULFATE
  13. GABAPENTIN [Concomitant]
     Active Substance: GABAPENTIN
  14. AZITHROMYCIN [Concomitant]
     Active Substance: AZITHROMYCIN
     Dates: start: 20240814
  15. PREDNISONE [Concomitant]
     Active Substance: PREDNISONE
     Route: 048
     Dates: start: 20240814
  16. METHYLPREDNISOLONE [Concomitant]
     Active Substance: METHYLPREDNISOLONE
     Route: 048
     Dates: start: 20240812
  17. DULERA [Concomitant]
     Active Substance: FORMOTEROL FUMARATE DIHYDRATE\MOMETASONE FUROATE
     Dates: start: 20240726
  18. SYMBICORT [Concomitant]
     Active Substance: BUDESONIDE\FORMOTEROL FUMARATE DIHYDRATE
     Dosage: 160 PER 4.5 MCG INHALATION 2 PUFFS BY MOUTH DAILY NOTED AS OF 26-JUN-2024
     Route: 048

REACTIONS (1)
  - Asthma [Recovering/Resolving]

NARRATIVE: CASE EVENT DATE: 20240521
